FAERS Safety Report 22321552 (Version 1)
Quarter: 2023Q2

REPORT INFORMATION
  Report Type: Spontaneous
  Country: SI (occurrence: SI)
  Receive Date: 20230515
  Receipt Date: 20230515
  Transmission Date: 20230721
  Serious: Yes (Other)
  Sender: FDA-Public Use
  Company Number: SI-BAYER-2023A067077

PATIENT
  Age: 68 Year
  Sex: Female

DRUGS (9)
  1. XARELTO [Suspect]
     Active Substance: RIVAROXABAN
     Indication: Atrial fibrillation
     Route: 048
  2. RAMIPRIL [Concomitant]
     Active Substance: RAMIPRIL
  3. LACIDIPINE [Concomitant]
     Active Substance: LACIDIPINE
  4. METFORMIN [Concomitant]
     Active Substance: METFORMIN HYDROCHLORIDE
  5. LINAGLIPTIN [Concomitant]
     Active Substance: LINAGLIPTIN
  6. ROSUVASTATIN [Concomitant]
     Active Substance: ROSUVASTATIN
  7. ALBUTEROL [Concomitant]
     Active Substance: ALBUTEROL
  8. ACETAMINOPHEN [Concomitant]
     Active Substance: ACETAMINOPHEN
  9. KETOPROFEN [Concomitant]
     Active Substance: KETOPROFEN

REACTIONS (5)
  - Atrial fibrillation [Unknown]
  - Renal impairment [Recovered/Resolved]
  - Epistaxis [Unknown]
  - Weight increased [Recovered/Resolved]
  - Mobility decreased [Unknown]
